FAERS Safety Report 14289463 (Version 11)
Quarter: 2019Q1

REPORT INFORMATION
  Report Type: Report from Study
  Country: US (occurrence: US)
  Receive Date: 20171214
  Receipt Date: 20190110
  Transmission Date: 20190417
  Serious: Yes (Hospitalization, Other)
  Sender: FDA-Public Use
  Company Number: US-ACTELION-A-NJ2017-163970

PATIENT
  Age: 75 Year
  Sex: Male
  Weight: 72.11 kg

DRUGS (5)
  1. TRACLEER [Suspect]
     Active Substance: BOSENTAN
     Indication: PULMONARY ARTERIAL HYPERTENSION
     Dosage: 125 MG, BID
     Route: 048
  2. TYVASO [Suspect]
     Active Substance: TREPROSTINIL
     Indication: PULMONARY ARTERIAL HYPERTENSION
     Dosage: 18-54 MCG, QID (3-9 BREATHS)
     Route: 055
     Dates: start: 20091228
  3. TYVASO [Suspect]
     Active Substance: TREPROSTINIL
     Dosage: 60-120 MCG, QID (10-20 BREATHS)
     Route: 055
  4. COUMADIN [Concomitant]
     Active Substance: WARFARIN SODIUM
  5. ADEMPAS [Concomitant]
     Active Substance: RIOCIGUAT
     Dosage: 2.5 MG, UNK

REACTIONS (18)
  - Anaemia [Unknown]
  - Abdominal distension [Unknown]
  - Transfusion [Unknown]
  - Fatigue [Recovering/Resolving]
  - Dysphonia [Unknown]
  - Epistaxis [Unknown]
  - Unevaluable event [Unknown]
  - Loss of personal independence in daily activities [Unknown]
  - Oesophageal rupture [Unknown]
  - Stent placement [Unknown]
  - Incorrect dose administered [Unknown]
  - Gastrointestinal haemorrhage [Unknown]
  - Scleral thinning [Unknown]
  - Sinus disorder [Unknown]
  - Vomiting [Unknown]
  - Haemorrhage [Unknown]
  - Arthritis [Unknown]
  - Pneumonia [Unknown]

NARRATIVE: CASE EVENT DATE: 2017
